FAERS Safety Report 5189134-4 (Version None)
Quarter: 2006Q4

REPORT INFORMATION
  Report Type: 
  Country: None (occurrence: None)
  Receive Date: 20061221
  Receipt Date: 20061012
  Transmission Date: 20070319
  Serious: No
  Sender: FDA-Public Use
  Company Number: US-AMGEN-US196810

PATIENT
  Sex: Female

DRUGS (3)
  1. ENBREL [Suspect]
     Indication: RHEUMATOID ARTHRITIS
     Route: 058
     Dates: start: 20051101
  2. ANTIBIOTICS [Suspect]
  3. SULFASALAZINE [Concomitant]
     Dates: start: 20030101

REACTIONS (3)
  - HEADACHE [None]
  - PARANASAL SINUS HYPERSECRETION [None]
  - SINUSITIS [None]
